FAERS Safety Report 18116329 (Version 2)
Quarter: 2020Q3

REPORT INFORMATION
  Report Type: Spontaneous
  Country: US (occurrence: US)
  Receive Date: 20200805
  Receipt Date: 20200916
  Transmission Date: 20201103
  Serious: Yes (Other)
  Sender: FDA-Public Use
  Company Number: NVSC2020US214728

PATIENT

DRUGS (1)
  1. ADAKVEO [Suspect]
     Active Substance: CRIZANLIZUMAB-TMCA
     Indication: PRODUCT USED FOR UNKNOWN INDICATION
     Dosage: 5 MG/KG, UNKNOWN
     Route: 042

REACTIONS (4)
  - Renal failure [Recovered/Resolved]
  - Concomitant disease aggravated [Recovered/Resolved]
  - Hepatic failure [Recovered/Resolved]
  - Acute chest syndrome [Recovered/Resolved]
